FAERS Safety Report 17154878 (Version 1)
Quarter: 2019Q4

REPORT INFORMATION
  Report Type: Spontaneous
  Country: US (occurrence: US)
  Receive Date: 20191214
  Receipt Date: 20191214
  Transmission Date: 20200122
  Serious: No
  Sender: FDA-Public Use
  Company Number: NVSC2019US069659

PATIENT
  Sex: Female

DRUGS (1)
  1. PIQRAY [Suspect]
     Active Substance: ALPELISIB
     Indication: BREAST CANCER FEMALE
     Dosage: 300 MG, BID
     Route: 048

REACTIONS (4)
  - Rash [Unknown]
  - Oral pain [Unknown]
  - Feeding disorder [Unknown]
  - Diarrhoea [Unknown]
